FAERS Safety Report 20564970 (Version 6)
Quarter: 2022Q2

REPORT INFORMATION
  Report Type: Report from Study
  Country: MX (occurrence: MX)
  Receive Date: 20220308
  Receipt Date: 20220613
  Transmission Date: 20220721
  Serious: Yes (Hospitalization, Other)
  Sender: FDA-Public Use
  Company Number: MX-NOVARTISPH-NVSC2022MX053835

PATIENT
  Age: 73 Year
  Sex: Male
  Weight: 68 kg

DRUGS (4)
  1. METFORMIN HYDROCHLORIDE\VILDAGLIPTIN [Suspect]
     Active Substance: METFORMIN HYDROCHLORIDE\VILDAGLIPTIN
     Indication: Diabetes mellitus
     Dosage: 1 DOSAGE FORM (1000/50 MG), BID (BY MOUTH)
     Route: 048
     Dates: start: 2012
  2. METFORMIN HYDROCHLORIDE\VILDAGLIPTIN [Suspect]
     Active Substance: METFORMIN HYDROCHLORIDE\VILDAGLIPTIN
     Dosage: 1 DOSAGE FORM (1000/50 MG), BID (IN THE MORNING AND AT NIGHT)
     Route: 048
     Dates: start: 2012
  3. METFORMIN HYDROCHLORIDE\VILDAGLIPTIN [Suspect]
     Active Substance: METFORMIN HYDROCHLORIDE\VILDAGLIPTIN
     Dosage: 1 DOSAGE FORM (50/850 MG), Q12H
     Route: 065
     Dates: start: 2014
  4. METFORMIN HYDROCHLORIDE\VILDAGLIPTIN [Suspect]
     Active Substance: METFORMIN HYDROCHLORIDE\VILDAGLIPTIN
     Dosage: 2 DOSAGE FORM (50/1000 MG), BID (STARTED MORE THAN 7 OR 8 YEARS AGO)
     Route: 048

REACTIONS (4)
  - Femur fracture [Recovering/Resolving]
  - Hip fracture [Recovering/Resolving]
  - Fall [Recovered/Resolved]
  - Gait disturbance [Unknown]

NARRATIVE: CASE EVENT DATE: 20210903
